FAERS Safety Report 18600913 (Version 2)
Quarter: 2020Q4

REPORT INFORMATION
  Report Type: Spontaneous
  Country: GB (occurrence: GB)
  Receive Date: 20201210
  Receipt Date: 20201222
  Transmission Date: 20210114
  Serious: Yes (Other)
  Sender: FDA-Public Use
  Company Number: GB-PFIZER INC-2020482224

PATIENT
  Age: 56 Year
  Sex: Male

DRUGS (4)
  1. METHOTREXATE SODIUM. [Suspect]
     Active Substance: METHOTREXATE SODIUM
     Dosage: 10 MG, QW
     Route: 065
  2. COSENTYX [Suspect]
     Active Substance: SECUKINUMAB
     Indication: PSORIATIC ARTHROPATHY
     Dosage: 150 MG, WEEK 0,1,2,3,4 THEN EVERY MONTH
     Route: 065
  3. METHOTREXATE SODIUM. [Suspect]
     Active Substance: METHOTREXATE SODIUM
     Indication: PSORIASIS
     Dosage: 15 MG, QW
     Route: 065
  4. METHOTREXATE SODIUM. [Suspect]
     Active Substance: METHOTREXATE SODIUM
     Dosage: 25 MG, QW
     Route: 065

REACTIONS (10)
  - Contusion [Unknown]
  - Swelling [Unknown]
  - Spinal cord oedema [Unknown]
  - Musculoskeletal stiffness [Unknown]
  - Back pain [Unknown]
  - Product prescribing error [Unknown]
  - Arthralgia [Unknown]
  - Fatigue [Unknown]
  - Spinal pain [Unknown]
  - Nausea [Unknown]
